FAERS Safety Report 7401411-2 (Version None)
Quarter: 2011Q2

REPORT INFORMATION
  Report Type: 
  Country: None (occurrence: None)
  Receive Date: 20110407
  Receipt Date: 20110328
  Transmission Date: 20111010
  Serious: Yes (Death, Hospitalization)
  Sender: FDA-Public Use
  Company Number: JP-BAYER-2011-001236

PATIENT
  Sex: Female

DRUGS (8)
  1. AVELOX [Suspect]
     Indication: UPPER RESPIRATORY TRACT INFLAMMATION
     Dosage: 400 MG, QD
     Route: 048
     Dates: start: 20101228, end: 20110101
  2. CEROCRAL [Concomitant]
     Dosage: DAILY DOSE 60 MG
     Route: 048
  3. LASIX [Concomitant]
     Dosage: UNK
     Route: 065
     Dates: start: 20110118
  4. AMLODIN [Concomitant]
     Dosage: DAILY DOSE 5 MG
     Route: 048
  5. PARIET [Concomitant]
     Dosage: DAILY DOSE 10 MG
     Route: 048
  6. SENNARIDE [Concomitant]
     Dosage: DAILY DOSE 36 MG
     Route: 048
  7. VESICARE [Concomitant]
     Dosage: DAILY DOSE 5 MG
     Route: 048
  8. NEO-MINOPHAGEN C [Concomitant]
     Dosage: UNK
     Route: 042
     Dates: start: 20110102, end: 20110124

REACTIONS (7)
  - HYPOPROTEINAEMIA [None]
  - HYPOGLYCAEMIC COMA [None]
  - MALAISE [None]
  - DEHYDRATION [None]
  - LIVER DISORDER [None]
  - CIRCULATORY COLLAPSE [None]
  - RESPIRATORY FAILURE [None]
